FAERS Safety Report 5458138-6 (Version None)
Quarter: 2007Q3

REPORT INFORMATION
  Report Type: 
  Country: None (occurrence: None)
  Receive Date: 20070917
  Receipt Date: 20070830
  Transmission Date: 20080115
  Serious: Yes (Life-Threatening, Hospitalization)
  Sender: FDA-Public Use
  Company Number: DSA_29096_2006

PATIENT
  Age: 62 Year
  Sex: Female

DRUGS (6)
  1. ENALAPRIL MALEATE [Suspect]
     Indication: HYPERTENSION
     Dosage: (10 10 MG QD ORAL)
     Route: 048
     Dates: start: 20040101, end: 20061106
  2. ETORICOXIB (ETORICOXIB) [Suspect]
     Indication: ARTHRALGIA
     Dosage: (60 MG QD ORAL)
     Route: 048
     Dates: start: 20061007
  3. ETORICOXIB (ETORICOXIB) [Suspect]
     Indication: BACK PAIN
     Dosage: (60 MG QD ORAL)
     Route: 048
     Dates: start: 20061007
  4. DETRALEX [Concomitant]
  5. BETALOC [Concomitant]
  6. PREDUCTAL [Concomitant]

REACTIONS (12)
  - ALANINE AMINOTRANSFERASE INCREASED [None]
  - ANGIOEDEMA [None]
  - APHONIA [None]
  - BLOOD BILIRUBIN DECREASED [None]
  - BLOOD CHOLESTEROL INCREASED [None]
  - BLOOD CREATINE PHOSPHOKINASE MB INCREASED [None]
  - BLOOD GLUCOSE INCREASED [None]
  - BLOOD UREA INCREASED [None]
  - EOSINOPHIL COUNT DECREASED [None]
  - NEUTROPHIL COUNT INCREASED [None]
  - SELF-MEDICATION [None]
  - URTICARIA [None]
